FAERS Safety Report 18171947 (Version 2)
Quarter: 2020Q3

REPORT INFORMATION
  Report Type: Spontaneous
  Country: US (occurrence: US)
  Receive Date: 20200819
  Receipt Date: 20200929
  Transmission Date: 20201103
  Serious: Yes (Other)
  Sender: FDA-Public Use
  Company Number: US-GILEAD-2020-0490066

PATIENT
  Age: 32 Year
  Sex: Male
  Weight: 78.9 kg

DRUGS (29)
  1. ATRIPLA [Suspect]
     Active Substance: EFAVIRENZ\EMTRICITABINE\TENOFOVIR DISOPROXIL FUMARATE
     Indication: PRODUCT USED FOR UNKNOWN INDICATION
     Dosage: UNK
     Route: 048
     Dates: start: 20070118, end: 200809
  2. ABACAVIR LAMIVUDINE [Concomitant]
     Active Substance: ABACAVIR\LAMIVUDINE
  3. ETODOLAC. [Concomitant]
     Active Substance: ETODOLAC
  4. MIRTAZAPINE. [Concomitant]
     Active Substance: MIRTAZAPINE
  5. ATORVASTATIN [Concomitant]
     Active Substance: ATORVASTATIN
  6. CITALOPRAM [Concomitant]
     Active Substance: CITALOPRAM HYDROBROMIDE
  7. MEGESTROL [Concomitant]
     Active Substance: MEGESTROL
  8. TRAZODONE [Concomitant]
     Active Substance: TRAZODONE HYDROCHLORIDE
  9. CHLORHEXIDINE [Concomitant]
     Active Substance: CHLORHEXIDINE
  10. DAPSONE. [Concomitant]
     Active Substance: DAPSONE
  11. ESOMEPRAZOLE. [Concomitant]
     Active Substance: ESOMEPRAZOLE MAGNESIUM
  12. HYDROCODONE BITARTRATE;PARACETAMOL [Concomitant]
  13. PROPOXYPHENE. [Concomitant]
     Active Substance: PROPOXYPHENE
  14. SMZ [Concomitant]
     Active Substance: SULFAMETHOXAZOLE\TRIMETHOPRIM
  15. EFAVIRENZ. [Concomitant]
     Active Substance: EFAVIRENZ
  16. FENOFIBRATE. [Concomitant]
     Active Substance: FENOFIBRATE
  17. LORAZEPAM. [Concomitant]
     Active Substance: LORAZEPAM
  18. TAMSULOSIN [Concomitant]
     Active Substance: TAMSULOSIN
  19. TESTOSTERONE. [Concomitant]
     Active Substance: TESTOSTERONE
  20. ALBUTEROL HFA [Concomitant]
     Active Substance: ALBUTEROL SULFATE
  21. MINOCYCLINE [Concomitant]
     Active Substance: MINOCYCLINE HYDROCHLORIDE
  22. ROSUVASTATIN. [Concomitant]
     Active Substance: ROSUVASTATIN
  23. AMOXICLAV [Concomitant]
     Active Substance: AMOXICILLIN\CLAVULANATE POTASSIUM
  24. LEVOFLOXACIN [LEVOFLOXACIN HEMIHYDRATE] [Concomitant]
  25. METRONIDAZOLE. [Concomitant]
     Active Substance: METRONIDAZOLE
  26. TEMAZEPAM. [Concomitant]
     Active Substance: TEMAZEPAM
  27. TRIAMCINOLONE [Concomitant]
     Active Substance: TRIAMCINOLONE
  28. TRIUMEQ [Concomitant]
     Active Substance: ABACAVIR SULFATE\DOLUTEGRAVIR SODIUM\LAMIVUDINE
  29. ZOLPIDEM [Concomitant]
     Active Substance: ZOLPIDEM TARTRATE

REACTIONS (7)
  - Fracture [Unknown]
  - Pain [Not Recovered/Not Resolved]
  - Emotional distress [Not Recovered/Not Resolved]
  - Osteoporosis [Unknown]
  - Anxiety [Not Recovered/Not Resolved]
  - Bone density decreased [Unknown]
  - Anhedonia [Not Recovered/Not Resolved]

NARRATIVE: CASE EVENT DATE: 200705
